FAERS Safety Report 5151595-4 (Version None)
Quarter: 2006Q4

REPORT INFORMATION
  Report Type: 
  Country: None (occurrence: None)
  Receive Date: 20061115
  Receipt Date: 20060103
  Transmission Date: 20070319
  Serious: No
  Sender: FDA-Public Use
  Company Number: US-BRISTOL-MYERS SQUIBB COMPANY-13234950

PATIENT
  Age: 74 Year
  Sex: Male
  Weight: 66 kg

DRUGS (6)
  1. SUSTIVA [Suspect]
     Indication: HIV INFECTION
     Route: 048
     Dates: start: 20050801
  2. AMBIEN [Concomitant]
  3. LUNESTA [Concomitant]
  4. COMBIVIR [Concomitant]
  5. ONE-A-DAY [Concomitant]
  6. ATENOLOL [Concomitant]

REACTIONS (1)
  - INSOMNIA [None]
